FAERS Safety Report 15471958 (Version 2)
Quarter: 2018Q4

REPORT INFORMATION
  Report Type: Report from Study
  Country: JP (occurrence: JP)
  Receive Date: 20181008
  Receipt Date: 20181210
  Transmission Date: 20190205
  Serious: No
  Sender: FDA-Public Use
  Company Number: JP-AMGEN-JPNNI2018139040

PATIENT
  Age: 51 Year
  Sex: Male
  Weight: 65 kg

DRUGS (6)
  1. CARFILZOMIB [Suspect]
     Active Substance: CARFILZOMIB
     Dosage: 36MG/M2/DAY (15/5/2018, 16/5/2018, 22/5/2018, 23/5/2018, 29/5/2018, 30/5/2018)
     Route: 041
     Dates: end: 20180530
  2. ACICLOVIR [Concomitant]
     Active Substance: ACYCLOVIR
     Indication: ANTIVIRAL PROPHYLAXIS
     Dosage: UNK
     Route: 048
     Dates: start: 20180125
  3. DEXAMETHASONE. [Concomitant]
     Active Substance: DEXAMETHASONE
     Dosage: 15/5/2018, 16/5/2018, 22/5/2018, 23/5/2018, 29/5/2018, 30/5/2018, 5/6/2018, 6/6/2018
     Route: 048
     Dates: end: 20180606
  4. DEXAMETHASONE. [Concomitant]
     Active Substance: DEXAMETHASONE
     Indication: PLASMA CELL MYELOMA
     Dosage: 27/1/2018, 28/1/2018, 3/2/2018, 4/2/2018, 10/2/2018, 11/2/2018, 17/2/2018, 18/2/2018, 10/4/2018, 11/
     Route: 048
     Dates: start: 20180127
  5. CARFILZOMIB [Suspect]
     Active Substance: CARFILZOMIB
     Indication: PLASMA CELL MYELOMA
     Dosage: 20MG/M2/DAY (27/1/2018, 28/1/2018), 56MG/M2/DAY (3/2/2018, 4/2/2018), 45MG/M2/DAY (10/2/2018, 11/2/2
     Route: 041
     Dates: start: 20180127
  6. CARFILZOMIB [Suspect]
     Active Substance: CARFILZOMIB
     Dosage: 45MG/M2/DAY (10/4/2018, 11/4/2018), 36MG/M2/DAY (17/4/2018, 18/4/2018, 24/4/2018, 25/4/2018)
     Route: 041

REACTIONS (1)
  - Haematotoxicity [Recovered/Resolved]

NARRATIVE: CASE EVENT DATE: 20180209
